FAERS Safety Report 23520711 (Version 1)
Quarter: 2024Q1

REPORT INFORMATION
  Report Type: 
  Country: None (occurrence: None)
  Receive Date: 20240214
  Receipt Date: 20240214
  Transmission Date: 20240409
  Serious: No
  Sender: FDA-Public Use
  Company Number: None

PATIENT
  Weight: 64 kg

DRUGS (6)
  1. PERINDOPRIL [Suspect]
     Active Substance: PERINDOPRIL
     Dates: start: 20230509
  2. PREDNISOLONE SODIUM METAZOATE [Suspect]
     Active Substance: PREDNISOLONE SODIUM METAZOATE
     Dates: start: 20230509
  3. LOMUSTINE [Suspect]
     Active Substance: LOMUSTINE
     Dosage: 40 MG*4/6 SEMAINES
     Dates: start: 20221123, end: 20231011
  4. AVASTIN [Suspect]
     Active Substance: BEVACIZUMAB
     Dosage: TOUS LES 14 JOURS.
     Dates: start: 20221207, end: 20240103
  5. KEPPRA [Suspect]
     Active Substance: LEVETIRACETAM
     Dosage: 750 MG MATIN ET SOIR
     Dates: start: 20221115, end: 20231107
  6. KEPPRA [Suspect]
     Active Substance: LEVETIRACETAM
     Dosage: 500 MG MATIN ET SOIR
     Dates: start: 20231108

REACTIONS (2)
  - Hepatitis cholestatic [None]
  - Hepatic steatosis [None]

NARRATIVE: CASE EVENT DATE: 20230830
